FAERS Safety Report 22051713 (Version 3)
Quarter: 2023Q2

REPORT INFORMATION
  Report Type: Spontaneous
  Country: JP (occurrence: JP)
  Receive Date: 20230302
  Receipt Date: 20230517
  Transmission Date: 20230722
  Serious: Yes (Hospitalization, Other)
  Sender: FDA-Public Use
  Company Number: JP-ABBVIE-4325157

PATIENT
  Age: 80 Year
  Sex: Female

DRUGS (1)
  1. SKYRIZI [Suspect]
     Active Substance: RISANKIZUMAB-RZAA
     Indication: Psoriasis
     Dosage: FORM STRENGTH: 150MG?DURATION TEXT: 5 TIMES ADMINISTERED
     Route: 058
     Dates: start: 2021

REACTIONS (2)
  - Renal impairment [Recovering/Resolving]
  - Aortic valve stenosis [Unknown]

NARRATIVE: CASE EVENT DATE: 20230201
